FAERS Safety Report 14698402 (Version 2)
Quarter: 2018Q3

REPORT INFORMATION
  Report Type: Report from Study
  Country: GB (occurrence: GB)
  Receive Date: 20180330
  Receipt Date: 20180901
  Transmission Date: 20181010
  Serious: Yes (Other)
  Sender: FDA-Public Use
  Company Number: GB-UCBSA-2016047108

PATIENT
  Sex: Female

DRUGS (3)
  1. CIMZIA [Suspect]
     Active Substance: CERTOLIZUMAB PEGOL
     Dosage: 200 MG, EV 2 WEEKS(QOW)
     Route: 058
  2. CERTOLIZUMAB PEGOL RA AUTOCLICKS [Suspect]
     Active Substance: CERTOLIZUMAB PEGOL
     Indication: RHEUMATOID ARTHRITIS
     Dosage: 200 MG, EV 2 WEEKS(QOW)
     Route: 058
     Dates: start: 20170412
  3. CIMZIA [Suspect]
     Active Substance: CERTOLIZUMAB PEGOL
     Indication: RHEUMATOID ARTHRITIS
     Dosage: 400 MG, EV 2 WEEKS(QOW)
     Route: 058
     Dates: start: 20161108, end: 2016

REACTIONS (11)
  - Malaise [Unknown]
  - Headache [Unknown]
  - Injection site coldness [Unknown]
  - Surgery [Unknown]
  - Injection site erythema [Recovered/Resolved]
  - Drug ineffective [Unknown]
  - Influenza like illness [Unknown]
  - Injection site pruritus [Recovered/Resolved]
  - Diarrhoea [Unknown]
  - Injection site pain [Unknown]
  - Injection site induration [Unknown]

NARRATIVE: CASE EVENT DATE: 2016
